FAERS Safety Report 12929334 (Version 2)
Quarter: 2016Q4

REPORT INFORMATION
  Report Type: Spontaneous
  Country: DE (occurrence: DE)
  Receive Date: 20161110
  Receipt Date: 20161206
  Transmission Date: 20170207
  Serious: Yes (Other)
  Sender: FDA-Public Use
  Company Number: DE-CELLTRION INC.-2016DE011812

PATIENT

DRUGS (3)
  1. REMSIMA [Suspect]
     Active Substance: INFLIXIMAB
     Indication: CROHN^S DISEASE
     Dosage: UNK UNK, SINGLE
     Route: 042
  2. REMSIMA [Suspect]
     Active Substance: INFLIXIMAB
     Dosage: 300 MG, SINGLE
     Route: 042
     Dates: start: 20161027, end: 20161027
  3. REMSIMA [Suspect]
     Active Substance: INFLIXIMAB
     Dosage: SINGLE
     Route: 042
     Dates: start: 201609, end: 201609

REACTIONS (3)
  - Conjunctivitis [Recovered/Resolved]
  - Chest discomfort [Recovered/Resolved]
  - Feeling hot [Recovered/Resolved]

NARRATIVE: CASE EVENT DATE: 20161027
